FAERS Safety Report 9463176 (Version 2)
Quarter: 2013Q3

REPORT INFORMATION
  Report Type: Spontaneous
  Country: BR (occurrence: BR)
  Receive Date: 20130817
  Receipt Date: 20130817
  Transmission Date: 20140515
  Serious: Yes (Other)
  Sender: FDA-Public Use
  Company Number: BR-ROCHE-1220217

PATIENT
  Age: 52 Year
  Sex: Female

DRUGS (4)
  1. AVASTIN [Suspect]
     Indication: BREAST CANCER
     Route: 065
     Dates: start: 20100617
  2. AVASTIN [Suspect]
     Route: 065
     Dates: start: 20101209
  3. TAXOL [Suspect]
     Indication: BREAST CANCER
     Route: 065
  4. DECADRON [Concomitant]
     Indication: PREMEDICATION
     Route: 065

REACTIONS (4)
  - Panic disorder [Recovered/Resolved]
  - Pneumonia [Unknown]
  - Neuropathy peripheral [Unknown]
  - Hypertension [Unknown]
